FAERS Safety Report 8838472 (Version 1)
Quarter: 2012Q4

REPORT INFORMATION
  Report Type: 
  Country: GB (occurrence: GB)
  Receive Date: 20121012
  Receipt Date: 20121012
  Transmission Date: 20130627
  Serious: Yes (Other)
  Sender: FDA-Public Use
  Company Number: GB-B.I. PHARMACEUTICALS,INC./RIDGEFIELD-2012-UK-01370UK

PATIENT
  Age: 81 Year
  Sex: Female
  Weight: 75 kg

DRUGS (13)
  1. DABIGATRAN [Suspect]
     Indication: ATRIAL FIBRILLATION
     Dosage: 220 mg
     Route: 048
     Dates: start: 201204
  2. DABIGATRAN [Suspect]
     Indication: TRANSIENT ISCHAEMIC ATTACK
  3. BECONASE [Concomitant]
  4. BENDROFLUMETHIAZIDE [Concomitant]
  5. BUDESONIDE AND FORMOTEROL FUMARATE [Concomitant]
  6. DIGOXIN [Concomitant]
  7. GAVISCON [Concomitant]
  8. GTN [Concomitant]
  9. LATANOPROST [Concomitant]
  10. MOXONIDINE [Concomitant]
  11. RAMIPRIL [Concomitant]
  12. SIMVASTATIN [Concomitant]
  13. VENTOLIN [Concomitant]

REACTIONS (3)
  - Dyspnoea [Unknown]
  - Condition aggravated [Unknown]
  - Wheezing [Not Recovered/Not Resolved]
